FAERS Safety Report 24680132 (Version 1)
Quarter: 2024Q4

REPORT INFORMATION
  Report Type: Spontaneous
  Country: US (occurrence: US)
  Receive Date: 20241129
  Receipt Date: 20241129
  Transmission Date: 20250115
  Serious: Yes (Life-Threatening, Hospitalization, Other)
  Sender: BRACCO
  Company Number: US-BRACCO-2024US00023

PATIENT
  Age: 60 Year
  Sex: Female

DRUGS (6)
  1. LUMASON [Suspect]
     Active Substance: SULFUR HEXAFLUORIDE
     Indication: Echocardiogram
     Dosage: UNK UNK, SINGLE
     Route: 042
     Dates: start: 20240103, end: 20240103
  2. LUMASON [Suspect]
     Active Substance: SULFUR HEXAFLUORIDE
     Indication: Echocardiogram
     Dosage: UNK UNK, SINGLE
     Route: 042
     Dates: start: 20240103, end: 20240103
  3. LUMASON [Suspect]
     Active Substance: SULFUR HEXAFLUORIDE
     Indication: Echocardiogram
     Dosage: UNK UNK, SINGLE
     Route: 042
     Dates: start: 20240103, end: 20240103
  4. ALBUTEROL [Concomitant]
     Active Substance: ALBUTEROL
  5. MIBI TECHNESCAN [Concomitant]
  6. REGADENOSON [Concomitant]
     Active Substance: REGADENOSON
     Indication: Scan myocardial perfusion
     Dosage: UNK
     Dates: start: 20240103, end: 20240103

REACTIONS (1)
  - Respiratory arrest [Recovering/Resolving]

NARRATIVE: CASE EVENT DATE: 20240103
